FAERS Safety Report 9686177 (Version 2)
Quarter: 2013Q4

REPORT INFORMATION
  Report Type: Spontaneous
  Country: US (occurrence: US)
  Receive Date: 20131113
  Receipt Date: 20131230
  Transmission Date: 20140711
  Serious: No
  Sender: FDA-Public Use
  Company Number: US-PFIZER INC-2013319576

PATIENT
  Age: 71 Year
  Sex: Male
  Weight: 79 kg

DRUGS (4)
  1. ATORVASTATIN CALCIUM [Suspect]
     Indication: BLOOD CHOLESTEROL INCREASED
     Dosage: 10 MG, 1X/DAY
     Route: 048
  2. DIOVANE [Concomitant]
     Indication: HYPERTENSION
     Dosage: 80 MG, UNK
  3. DIOVANE [Concomitant]
     Dosage: 40 MG, UNK
  4. FINASTERIDE [Concomitant]
     Dosage: 5 MG, UNK

REACTIONS (1)
  - Blood creatinine increased [Unknown]
